FAERS Safety Report 9105356 (Version 2)
Quarter: 2013Q1

REPORT INFORMATION
  Report Type: Report from Study
  Country: US (occurrence: US)
  Receive Date: 20130220
  Receipt Date: 20130301
  Transmission Date: 20140127
  Serious: Yes (Hospitalization, Other)
  Sender: FDA-Public Use
  Company Number: US-JNJFOC-20130209256

PATIENT
  Age: 20 Year
  Sex: Female
  Weight: 44.4 kg

DRUGS (5)
  1. REMICADE [Suspect]
     Indication: INFLAMMATORY BOWEL DISEASE
     Route: 042
     Dates: start: 20060313
  2. HUMIRA [Concomitant]
     Dates: start: 20110104
  3. HUMIRA [Concomitant]
     Dates: start: 20070125, end: 20090626
  4. CIMZIA [Concomitant]
     Dates: start: 20090728, end: 20101211
  5. VITAMIN D [Concomitant]

REACTIONS (1)
  - Abscess [Recovered/Resolved]
